FAERS Safety Report 17166326 (Version 3)
Quarter: 2021Q4

REPORT INFORMATION
  Report Type: Spontaneous
  Country: JP (occurrence: JP)
  Receive Date: 20191217
  Receipt Date: 20211214
  Transmission Date: 20220303
  Serious: Yes (Hospitalization)
  Sender: FDA-Public Use
  Company Number: JP-GUERBET-JP-20190234

PATIENT
  Age: 64 Year
  Sex: Male

DRUGS (4)
  1. LIPIODOL [Suspect]
     Active Substance: ETHIODIZED OIL
     Indication: Transcatheter arterial chemoembolisation
     Route: 013
  2. LIPIODOL [Suspect]
     Active Substance: ETHIODIZED OIL
     Dosage: TWO  SESSIONS
     Route: 013
  3. EPIRUBICIN [Suspect]
     Active Substance: EPIRUBICIN
     Indication: Transcatheter arterial chemoembolisation
     Route: 013
  4. EPIRUBICIN [Suspect]
     Active Substance: EPIRUBICIN
     Dosage: TWO SESSIONS
     Route: 013

REACTIONS (3)
  - Jaundice cholestatic [Recovered/Resolved]
  - Biliary obstruction [Recovered/Resolved]
  - Post embolisation syndrome [Recovered/Resolved]
